FAERS Safety Report 5169837-8 (Version None)
Quarter: 2006Q4

REPORT INFORMATION
  Report Type: 
  Country: None (occurrence: None)
  Receive Date: 20061212
  Receipt Date: 20061110
  Transmission Date: 20070319
  Serious: No
  Sender: FDA-Public Use
  Company Number: US-AMGEN-US199960

PATIENT
  Sex: Female

DRUGS (12)
  1. SENSIPAR [Suspect]
     Indication: HYPERPARATHYROIDISM SECONDARY
     Route: 048
     Dates: start: 20060914
  2. ARANESP [Concomitant]
  3. CALCITRIOL [Concomitant]
  4. CATAPRES [Concomitant]
  5. COZAAR [Concomitant]
  6. COLACE [Concomitant]
  7. LASIX [Concomitant]
  8. NEXIUM [Concomitant]
  9. NORVASC [Concomitant]
  10. ZANTAC [Concomitant]
  11. RENAGEL [Concomitant]
  12. IRON [Concomitant]
     Route: 042

REACTIONS (2)
  - ALOPECIA [None]
  - BLOOD PARATHYROID HORMONE INCREASED [None]
